FAERS Safety Report 7574355-3 (Version None)
Quarter: 2011Q2

REPORT INFORMATION
  Report Type: 
  Country: None (occurrence: None)
  Receive Date: 20110627
  Receipt Date: 20110621
  Transmission Date: 20111010
  Serious: Yes (Other)
  Sender: FDA-Public Use
  Company Number: US-MERCK-1103USA03902

PATIENT
  Age: 71 Year
  Sex: Female
  Weight: 86 kg

DRUGS (10)
  1. SPIRIVA [Concomitant]
     Route: 065
  2. JANUMET [Suspect]
     Indication: BLOOD GLUCOSE
     Route: 048
     Dates: start: 20070101, end: 20100701
  3. JANUMET [Suspect]
     Route: 048
     Dates: start: 20100701
  4. SIMVASTATIN [Concomitant]
     Route: 048
     Dates: end: 20110301
  5. LASIX [Concomitant]
     Route: 065
  6. JANUMET [Suspect]
     Route: 048
  7. CHOLECALCIFEROL [Concomitant]
     Route: 065
  8. XANAX [Concomitant]
     Route: 065
  9. PERCOCET [Concomitant]
     Route: 065
  10. SYNTHROID [Concomitant]
     Route: 065

REACTIONS (9)
  - MOVEMENT DISORDER [None]
  - ARTHROPATHY [None]
  - POSTOPERATIVE ADHESION [None]
  - ARTHRALGIA [None]
  - WEIGHT DECREASED [None]
  - PAIN IN EXTREMITY [None]
  - HYPOCHONDRIASIS [None]
  - OVERWEIGHT [None]
  - WEIGHT INCREASED [None]
